FAERS Safety Report 16792714 (Version 1)
Quarter: 2019Q3

REPORT INFORMATION
  Report Type: Spontaneous
  Country: DE (occurrence: DE)
  Receive Date: 20190910
  Receipt Date: 20190910
  Transmission Date: 20191005
  Serious: Yes (Hospitalization, Other)
  Sender: FDA-Public Use
  Company Number: PHHY2019DE207148

PATIENT
  Age: 73 Year
  Sex: Male
  Weight: 80 kg

DRUGS (1)
  1. DOXYCYCLIN - 1 A PHARMA [Suspect]
     Active Substance: DOXYCYCLINE
     Indication: BORRELIA INFECTION
     Dosage: 100 MG, QD
     Route: 065
     Dates: start: 20190708, end: 20190720

REACTIONS (3)
  - Tachycardia [Recovered/Resolved]
  - Palpitations [Recovered/Resolved]
  - Pulse pressure increased [Recovered/Resolved]

NARRATIVE: CASE EVENT DATE: 201907
